FAERS Safety Report 20745147 (Version 2)
Quarter: 2022Q2

REPORT INFORMATION
  Report Type: Report from Study
  Country: JP (occurrence: JP)
  Receive Date: 20220425
  Receipt Date: 20220613
  Transmission Date: 20220720
  Serious: Yes (Hospitalization, Other)
  Sender: FDA-Public Use
  Company Number: JP-NOVARTISPH-NVSJ2022JP089093

PATIENT
  Age: 69 Year
  Sex: Female
  Weight: 38 kg

DRUGS (7)
  1. ILARIS [Suspect]
     Active Substance: CANAKINUMAB
     Indication: Familial mediterranean fever
     Dosage: 150 MG
     Route: 058
     Dates: start: 20220214
  2. ILARIS [Suspect]
     Active Substance: CANAKINUMAB
     Dosage: 150 MG
     Route: 058
     Dates: start: 20220317
  3. ILARIS [Suspect]
     Active Substance: CANAKINUMAB
     Dosage: 150 MG
     Route: 058
     Dates: start: 20220502
  4. ILARIS [Suspect]
     Active Substance: CANAKINUMAB
     Dosage: 150 MG
     Route: 058
     Dates: start: 20220530
  5. PREDNISOLONE [Suspect]
     Active Substance: PREDNISOLONE
     Indication: Familial mediterranean fever
     Dosage: UNK
     Route: 048
  6. COLCHICINE [Concomitant]
     Active Substance: COLCHICINE
     Indication: Familial mediterranean fever
     Dosage: 0.5 MG
     Route: 048
     Dates: start: 20211209, end: 20220407
  7. IMURAN [Concomitant]
     Active Substance: AZATHIOPRINE
     Indication: Familial mediterranean fever
     Dosage: UNK
     Route: 048

REACTIONS (5)
  - Mycobacterial infection [Not Recovered/Not Resolved]
  - Tenosynovitis [Unknown]
  - Synovitis [Unknown]
  - Implant site infection [Recovering/Resolving]
  - Gastric perforation [Recovered/Resolved]

NARRATIVE: CASE EVENT DATE: 20220411
